FAERS Safety Report 16213023 (Version 1)
Quarter: 2019Q2

REPORT INFORMATION
  Report Type: Spontaneous
  Country: BG (occurrence: BG)
  Receive Date: 20190418
  Receipt Date: 20190418
  Transmission Date: 20190711
  Serious: Yes (Hospitalization)
  Sender: FDA-Public Use
  Company Number: BG-GILEAD-2019-0402578

PATIENT
  Age: 53 Year
  Sex: Male

DRUGS (3)
  1. INSULIN DEGLUDEC [Concomitant]
     Active Substance: INSULIN DEGLUDEC
  2. INSULIN ASPART [Concomitant]
     Active Substance: INSULIN ASPART
  3. VIREAD [Suspect]
     Active Substance: TENOFOVIR DISOPROXIL FUMARATE
     Indication: CHRONIC HEPATITIS B
     Dosage: 245 MG
     Route: 065

REACTIONS (1)
  - Lichen myxoedematosus [Recovering/Resolving]
